FAERS Safety Report 9026301 (Version 2)
Quarter: 2013Q1

REPORT INFORMATION
  Report Type: Spontaneous
  Country: BR (occurrence: None)
  Receive Date: 20121211
  Receipt Date: 20121218
  Transmission Date: 20140127
  Serious: Yes (Hospitalization, Other)
  Sender: FDA-Public Use
  Company Number: DSU-2012-09558

PATIENT
  Age: 74 Year
  Sex: Male
  Weight: 82 kg

DRUGS (1)
  1. OLMETEC (OLMESARTAN MEDOXOMIL) [Suspect]
     Indication: PRODUCT USED FOR UNKNOWN INDICATION
     Route: 048
     Dates: start: 20091207

REACTIONS (7)
  - Coronary artery bypass [None]
  - Cardiac operation [None]
  - Blood pressure inadequately controlled [None]
  - Drug dose omission [None]
  - Treatment noncompliance [None]
  - Infarction [None]
  - Blood pressure increased [None]
